FAERS Safety Report 6500318-2 (Version None)
Quarter: 2009Q4

REPORT INFORMATION
  Report Type: 
  Country: None (occurrence: None)
  Receive Date: 20091216
  Receipt Date: 20091207
  Transmission Date: 20100525
  Serious: Yes (Death)
  Sender: FDA-Public Use
  Company Number: JP-ROCHE-674408

PATIENT
  Age: 46 Year
  Sex: Female

DRUGS (1)
  1. TAMIFLU [Suspect]
     Dosage: STOP DATE:DECEMBER 2009. DOSE, FREQUENCY UNSPECIFIED.
     Route: 048
     Dates: start: 20091203

REACTIONS (1)
  - PNEUMONIA [None]
